FAERS Safety Report 13284950 (Version 1)
Quarter: 2017Q1

REPORT INFORMATION
  Report Type: Spontaneous
  Country: US (occurrence: US)
  Receive Date: 20170301
  Receipt Date: 20170301
  Transmission Date: 20170428
  Serious: Yes (Hospitalization)
  Sender: FDA-Public Use
  Company Number: None

PATIENT
  Age: 17 Year
  Sex: Male
  Weight: 58.5 kg

DRUGS (1)
  1. DEPAKOTE [Suspect]
     Active Substance: DIVALPROEX SODIUM
     Indication: HEADACHE

REACTIONS (6)
  - Memory impairment [None]
  - Neurotoxicity [None]
  - Confusional state [None]
  - Altered state of consciousness [None]
  - Ammonia increased [None]
  - Irritability [None]

NARRATIVE: CASE EVENT DATE: 20140319
